FAERS Safety Report 24321632 (Version 2)
Quarter: 2024Q4

REPORT INFORMATION
  Report Type: Spontaneous
  Country: JP (occurrence: JP)
  Receive Date: 20240916
  Receipt Date: 20241205
  Transmission Date: 20250114
  Serious: Yes (Hospitalization)
  Sender: MERCK
  Company Number: JP-MSD-M2024-36189

PATIENT
  Age: 53 Year
  Sex: Female

DRUGS (1)
  1. KEYTRUDA [Suspect]
     Active Substance: PEMBROLIZUMAB
     Dosage: 200 MILLIGRAM, Q3W
     Route: 041
     Dates: start: 20240726

REACTIONS (3)
  - Fracture [Unknown]
  - Diarrhoea [Recovered/Resolved]
  - Fall [Unknown]

NARRATIVE: CASE EVENT DATE: 20240801
